FAERS Safety Report 5339733-1 (Version None)
Quarter: 2007Q2

REPORT INFORMATION
  Report Type: 
  Country: None (occurrence: None)
  Receive Date: 20070531
  Receipt Date: 20070523
  Transmission Date: 20071010
  Serious: Yes (Other)
  Sender: FDA-Public Use
  Company Number: PHEH2007US07864

PATIENT
  Age: 88 Year
  Sex: Female

DRUGS (7)
  1. TEKTURNA [Suspect]
     Indication: HYPERTENSION
     Dosage: 150 MG, QD
  2. PREDNISONE TAB [Concomitant]
  3. ISOSORBIDE MONONITRATE [Concomitant]
  4. ASPIRIN [Concomitant]
  5. ZOCOR [Concomitant]
  6. CALCIUM CHLORIDE [Concomitant]
  7. VITAMIN D [Concomitant]

REACTIONS (1)
  - BLOOD UREA INCREASED [None]
